FAERS Safety Report 10744614 (Version 1)
Quarter: 2015Q1

REPORT INFORMATION
  Report Type: Spontaneous
  Country: US (occurrence: None)
  Receive Date: 20150126
  Receipt Date: 20150126
  Transmission Date: 20150721
  Serious: Yes (Other)
  Sender: FDA-Public Use
  Company Number: None

PATIENT
  Age: 61 Year
  Sex: Male
  Weight: 83.92 kg

DRUGS (1)
  1. TRIUMEQ [Suspect]
     Active Substance: ABACAVIR SULFATE\DOLUTEGRAVIR SODIUM\LAMIVUDINE
     Indication: HIV INFECTION
     Dosage: 1 PILL
     Route: 048
     Dates: start: 20141024, end: 20150108

REACTIONS (3)
  - Cat scratch disease [None]
  - Optic neuritis [None]
  - Multiple sclerosis [None]

NARRATIVE: CASE EVENT DATE: 20141126
